FAERS Safety Report 20900248 (Version 1)
Quarter: 2022Q2

REPORT INFORMATION
  Report Type: Spontaneous
  Country: US (occurrence: US)
  Receive Date: 20220601
  Receipt Date: 20220601
  Transmission Date: 20220721
  Serious: Yes (Other)
  Sender: FDA-Public Use
  Company Number: US-BRISTOL-MYERS SQUIBB COMPANY-2022-047117

PATIENT
  Age: 77 Year
  Sex: Female
  Weight: 77.11 kg

DRUGS (1)
  1. ELIQUIS [Suspect]
     Active Substance: APIXABAN
     Indication: Pulmonary thrombosis
     Dosage: DOSE : ONE;     FREQ : TWICE A DAY
     Route: 048
     Dates: start: 20220308, end: 20220520

REACTIONS (1)
  - Thrombosis [Unknown]

NARRATIVE: CASE EVENT DATE: 20220101
